FAERS Safety Report 5146529-2 (Version None)
Quarter: 2006Q4

REPORT INFORMATION
  Report Type: 
  Country: None (occurrence: None)
  Receive Date: 20061107
  Receipt Date: 20061107
  Transmission Date: 20070319
  Serious: Yes (Hospitalization)
  Sender: FDA-Public Use
  Company Number: None

PATIENT
  Age: 48 Year
  Sex: Female
  Weight: 74 kg

DRUGS (13)
  1. IOHEXOL     320 MGL/ML    AMERSHAM HEALTH [Suspect]
     Indication: COMPUTERISED TOMOGRAM
     Dosage: 150ML   ONCE    IV BOLUS
     Route: 040
     Dates: start: 20060322, end: 20060322
  2. IOHEXOL     320 MGL/ML    AMERSHAM HEALTH [Suspect]
     Indication: NEOPLASM MALIGNANT
     Dosage: 150ML   ONCE    IV BOLUS
     Route: 040
     Dates: start: 20060322, end: 20060322
  3. CLARITHROMYCIN [Concomitant]
  4. CALCIUM [Concomitant]
  5. PROMETHAZINE [Concomitant]
  6. CEFOTAXIME [Concomitant]
  7. ALBUTEROL/IPRATROPIUM NEBS [Concomitant]
  8. HYDROCODONE BITARTRATE + ACETAMINOPHEN [Concomitant]
  9. BUPROPRION SR [Concomitant]
  10. FLUTICASONE/SALMETEROL [Concomitant]
  11. ESOMEPRAZOLE MAGNESIUM [Concomitant]
  12. LISINOPRIL [Concomitant]
  13. TOPRIAMATE [Concomitant]

REACTIONS (5)
  - INFUSION SITE EXTRAVASATION [None]
  - MASTITIS [None]
  - MEDICATION ERROR [None]
  - PROCEDURAL COMPLICATION [None]
  - WRONG TECHNIQUE IN DRUG USAGE PROCESS [None]
